FAERS Safety Report 13824710 (Version 3)
Quarter: 2017Q4

REPORT INFORMATION
  Report Type: Spontaneous
  Country: PL (occurrence: PL)
  Receive Date: 20170802
  Receipt Date: 20171005
  Transmission Date: 20180320
  Serious: Yes (Hospitalization, Other)
  Sender: FDA-Public Use
  Company Number: PL-ASTELLAS-2017US030226

PATIENT
  Age: 55 Year
  Sex: Female

DRUGS (6)
  1. MYCOPHENOLATE SODIUM [Suspect]
     Active Substance: MYCOPHENOLATE SODIUM
     Route: 048
  2. MYCOPHENOLATE SODIUM [Suspect]
     Active Substance: MYCOPHENOLATE SODIUM
     Indication: RENAL TRANSPLANT
     Dosage: UNK UNK, UNKNOWN FREQ.
     Route: 048
  3. PROGRAF [Suspect]
     Active Substance: TACROLIMUS\TACROLIMUS ANHYDROUS
     Indication: RENAL TRANSPLANT
     Route: 048
     Dates: start: 20120427
  4. PREDNISONE. [Suspect]
     Active Substance: PREDNISONE
     Indication: RENAL TRANSPLANT
     Dosage: UNK UNK, UNKNOWN FREQ.
     Route: 065
  5. PREDNISONE. [Suspect]
     Active Substance: PREDNISONE
     Route: 065
  6. MYCOPHENOLATE SODIUM [Suspect]
     Active Substance: MYCOPHENOLATE SODIUM
     Route: 048

REACTIONS (9)
  - Torticollis [Recovered/Resolved]
  - Haematoma [Recovered/Resolved]
  - Plasmapheresis [Unknown]
  - Gastrointestinal haemorrhage [Recovered/Resolved]
  - Aspergillus infection [Recovering/Resolving]
  - Diabetes mellitus [Not Recovered/Not Resolved]
  - Thrombotic microangiopathy [Recovered/Resolved]
  - Oesophagitis [Recovered/Resolved]
  - Delayed graft function [Recovered/Resolved]

NARRATIVE: CASE EVENT DATE: 20120427
